FAERS Safety Report 8270783-1 (Version None)
Quarter: 2012Q2

REPORT INFORMATION
  Report Type: 
  Country: None (occurrence: None)
  Receive Date: 20120410
  Receipt Date: 20120327
  Transmission Date: 20120825
  Serious: Yes (Death, Hospitalization, Other)
  Sender: FDA-Public Use
  Company Number: DE-ROCHE-1049743

PATIENT
  Age: 58 Year
  Sex: Female
  Weight: 85 kg

DRUGS (6)
  1. REBETOL [Suspect]
     Indication: HEPATITIS C
     Dates: start: 20111107
  2. PEGASYS [Suspect]
     Indication: HEPATITIS C
     Dates: start: 20111107
  3. VICTRELIS [Suspect]
     Indication: HEPATITIS C
     Dates: start: 20111212
  4. PANTOPRAZOLE [Concomitant]
     Indication: ILL-DEFINED DISORDER
     Dates: start: 20050101
  5. FLUOXETINE HCL [Concomitant]
     Indication: DEPRESSION
     Dates: start: 20111201
  6. DOXEPIN HCL [Concomitant]
     Indication: DEPRESSION
     Dates: start: 20120101

REACTIONS (9)
  - NAUSEA [None]
  - EATING DISORDER [None]
  - INFECTION [None]
  - HAEMOGLOBIN DECREASED [None]
  - VOMITING [None]
  - PNEUMONIA [None]
  - WHITE BLOOD CELL COUNT DECREASED [None]
  - URINARY TRACT INFECTION [None]
  - ASTHENIA [None]
